FAERS Safety Report 10361339 (Version 1)
Quarter: 2014Q3

REPORT INFORMATION
  Report Type: Spontaneous
  Country: US (occurrence: US)
  Receive Date: 20140804
  Receipt Date: 20140804
  Transmission Date: 20150326
  Serious: No
  Sender: FDA-Public Use
  Company Number: US-B.I. PHARMACEUTICALS,INC./RIDGEFIELD-2014-BI-34509BP

PATIENT
  Sex: Male

DRUGS (4)
  1. FLOMAX [Suspect]
     Active Substance: TAMSULOSIN HYDROCHLORIDE
     Indication: BENIGN PROSTATIC HYPERPLASIA
     Route: 065
  2. VIAGRA [Concomitant]
     Active Substance: SILDENAFIL CITRATE
     Route: 065
  3. UROXATROL [Concomitant]
     Indication: BENIGN PROSTATIC HYPERPLASIA
     Route: 065
  4. CIALIS [Concomitant]
     Active Substance: TADALAFIL
     Route: 065

REACTIONS (2)
  - Retrograde ejaculation [Unknown]
  - Erectile dysfunction [Unknown]
